FAERS Safety Report 18321909 (Version 1)
Quarter: 2020Q3

REPORT INFORMATION
  Report Type: Spontaneous
  Country: CH (occurrence: CH)
  Receive Date: 20200929
  Receipt Date: 20200929
  Transmission Date: 20201103
  Serious: Yes (Hospitalization, Other)
  Sender: FDA-Public Use
  Company Number: CH-LUPIN PHARMACEUTICALS INC.-2020-06514

PATIENT
  Age: 53 Year
  Sex: Female

DRUGS (1)
  1. TRAMADOL. [Suspect]
     Active Substance: TRAMADOL
     Indication: SUBSTANCE USE
     Dosage: UNK
     Route: 065

REACTIONS (6)
  - Toxicity to various agents [Unknown]
  - Delusion of parasitosis [Unknown]
  - Psychotic disorder [Unknown]
  - Hallucination [Unknown]
  - Agitation [Unknown]
  - Drug abuse [Unknown]
